FAERS Safety Report 9881904 (Version 1)
Quarter: 2014Q1

REPORT INFORMATION
  Report Type: Spontaneous
  Country: GB (occurrence: GB)
  Receive Date: 20140207
  Receipt Date: 20140207
  Transmission Date: 20141002
  Serious: Yes (Other)
  Sender: FDA-Public Use
  Company Number: PHHY2014GB014866

PATIENT
  Sex: Female

DRUGS (2)
  1. AZITHROMYCIN [Suspect]
     Indication: LUNG INFECTION
  2. ERGOTAMINE TARTRATE [Interacting]

REACTIONS (2)
  - Muscle spasms [Unknown]
  - Drug interaction [Unknown]
